FAERS Safety Report 23018108 (Version 1)
Quarter: 2023Q4

REPORT INFORMATION
  Report Type: Other
  Country: CA (occurrence: CA)
  Receive Date: 20231003
  Receipt Date: 20231003
  Transmission Date: 20240110
  Serious: Yes (Other)
  Sender: FDA-Public Use
  Company Number: CA-APOTEX-2023AP014237

PATIENT
  Age: 31 Year
  Sex: Male

DRUGS (1)
  1. DULOXETINE [Suspect]
     Active Substance: DULOXETINE
     Indication: Product used for unknown indication
     Dosage: 60 MILLIGRAM
     Route: 065

REACTIONS (3)
  - Memory impairment [Recovering/Resolving]
  - Concussion [Recovering/Resolving]
  - Suicidal ideation [Recovering/Resolving]
